FAERS Safety Report 22158355 (Version 1)
Quarter: 2023Q1

REPORT INFORMATION
  Report Type: Spontaneous
  Country: JP (occurrence: JP)
  Receive Date: 20230331
  Receipt Date: 20230331
  Transmission Date: 20230418
  Serious: Yes (Hospitalization)
  Sender: FDA-Public Use
  Company Number: JP-TEVA-2023-JP-000779J

PATIENT
  Age: 53 Year
  Sex: Female
  Weight: 69 kg

DRUGS (7)
  1. DICLOFENAC SODIUM [Suspect]
     Active Substance: DICLOFENAC SODIUM
     Indication: Procedural pain
     Dosage: 75 MILLIGRAM DAILY; TAB. 25MG ^TAKEDA TEVA^
     Route: 048
     Dates: start: 2023, end: 20230212
  2. CALONAL [Concomitant]
     Active Substance: ACETAMINOPHEN
     Indication: Product used for unknown indication
     Route: 065
  3. MAGNESIUM OXIDE [Concomitant]
     Active Substance: MAGNESIUM OXIDE
     Indication: Product used for unknown indication
     Route: 065
  4. RIVOTRIL [Concomitant]
     Active Substance: CLONAZEPAM
     Indication: Product used for unknown indication
     Route: 065
  5. HERBALS [Concomitant]
     Active Substance: HERBALS
     Indication: Product used for unknown indication
     Route: 065
  6. TSUMURA TOKISHIGYAKUKAGOSHUYUSHOKYOTO EXTRACT GRANULES [Concomitant]
     Indication: Product used for unknown indication
     Route: 065
  7. TSUMURA BOFUTSUSHOSAN EXTRACT GRANULES FOR ETHICAL USE [Concomitant]
     Indication: Product used for unknown indication
     Route: 065

REACTIONS (1)
  - Gastric ulcer [Recovering/Resolving]

NARRATIVE: CASE EVENT DATE: 20230211
